FAERS Safety Report 5826644-8 (Version None)
Quarter: 2008Q3

REPORT INFORMATION
  Report Type: 
  Country: None (occurrence: None)
  Receive Date: 20080728
  Receipt Date: 20080728
  Transmission Date: 20090109
  Serious: No
  Sender: FDA-Public Use
  Company Number: None

PATIENT
  Age: 56 Year
  Sex: Female
  Weight: 99.7913 kg

DRUGS (2)
  1. LYRICA [Suspect]
     Indication: NEURALGIA
     Dosage: 100MG 2 TIMES A DAY PO
     Route: 048
     Dates: start: 20071009, end: 20080102
  2. LYRICA [Suspect]
     Indication: PROCEDURAL PAIN
     Dosage: 100MG 2 TIMES A DAY PO
     Route: 048
     Dates: start: 20071009, end: 20080102

REACTIONS (5)
  - ANXIETY [None]
  - FEELING ABNORMAL [None]
  - FEELING HOT [None]
  - PANIC REACTION [None]
  - SUICIDAL IDEATION [None]
